FAERS Safety Report 7368143-0 (Version None)
Quarter: 2011Q1

REPORT INFORMATION
  Report Type: 
  Country: None (occurrence: None)
  Receive Date: 20110323
  Receipt Date: 20110317
  Transmission Date: 20110831
  Serious: No
  Sender: FDA-Public Use
  Company Number: US-PFIZER INC-2011061601

PATIENT
  Age: 80 Year
  Sex: Male

DRUGS (1)
  1. ADVIL LIQUI-GELS [Suspect]

REACTIONS (2)
  - PRODUCT LABEL CONFUSION [None]
  - DRUG LABEL CONFUSION [None]
